FAERS Safety Report 5902630-4 (Version None)
Quarter: 2008Q3

REPORT INFORMATION
  Report Type: 
  Country: None (occurrence: None)
  Receive Date: 20080926
  Receipt Date: 20080915
  Transmission Date: 20090109
  Serious: Yes (Other)
  Sender: FDA-Public Use
  Company Number: 2008BI017763

PATIENT
  Age: 36 Year
  Sex: Female
  Weight: 51.2565 kg

DRUGS (6)
  1. AVONEX [Suspect]
     Indication: MULTIPLE SCLEROSIS
     Dosage: 30 UG; QW; IM
     Route: 030
     Dates: start: 20080228
  2. MIRALAX [Concomitant]
  3. CLONAZEPAM [Concomitant]
  4. AMBIEN [Concomitant]
  5. BUSPAR [Concomitant]
  6. AMITIZA [Concomitant]

REACTIONS (3)
  - CARCINOID TUMOUR [None]
  - GASTROINTESTINAL CARCINOMA [None]
  - RENAL CANCER [None]
